FAERS Safety Report 8338037-2 (Version None)
Quarter: 2012Q2

REPORT INFORMATION
  Report Type: 
  Country: None (occurrence: None)
  Receive Date: 20120504
  Receipt Date: 20120426
  Transmission Date: 20120825
  Serious: Yes (Hospitalization)
  Sender: FDA-Public Use
  Company Number: FR-JNJFOC-20120412353

PATIENT
  Age: 38 Year
  Sex: Male

DRUGS (2)
  1. HERBAL OIL NOS [Concomitant]
     Indication: PRODUCT USED FOR UNKNOWN INDICATION
     Route: 003
  2. KETOCONAZOLE [Suspect]
     Indication: NECK PAIN
     Route: 003
     Dates: start: 20120201, end: 20120201

REACTIONS (3)
  - ECZEMA [None]
  - RASH PRURITIC [None]
  - OFF LABEL USE [None]
